FAERS Safety Report 5474741-1 (Version None)
Quarter: 2007Q4

REPORT INFORMATION
  Report Type: 
  Country: None (occurrence: None)
  Receive Date: 20071002
  Receipt Date: 20071002
  Transmission Date: 20080405
  Serious: Yes (Death, Life-Threatening, Hospitalization, Disabling, Other)
  Sender: FDA-Public Use
  Company Number: A0631150A

PATIENT
  Age: 27 Year
  Sex: Female
  Weight: 54.5 kg

DRUGS (5)
  1. LAMICTAL [Suspect]
     Indication: AFFECTIVE DISORDER
     Route: 048
     Dates: start: 20061101, end: 20061130
  2. LEXAPRO [Concomitant]
  3. ORAL CONTRACEPTIVES [Concomitant]
  4. VALTREX [Concomitant]
  5. FLU VACCINE [Concomitant]
     Dates: start: 20061127, end: 20061127

REACTIONS (36)
  - ABDOMINAL PAIN [None]
  - ACIDOSIS [None]
  - ACUTE RESPIRATORY DISTRESS SYNDROME [None]
  - ANAEMIA [None]
  - ASCITES [None]
  - ATELECTASIS [None]
  - CHEST DISCOMFORT [None]
  - CHILLS [None]
  - DISSEMINATED INTRAVASCULAR COAGULATION [None]
  - DRUG RASH WITH EOSINOPHILIA AND SYSTEMIC SYMPTOMS [None]
  - DYSPNOEA [None]
  - FLUSHING [None]
  - FUNGAEMIA [None]
  - FUNGUS URINE TEST POSITIVE [None]
  - GENERALISED OEDEMA [None]
  - HAEMATOCHEZIA [None]
  - HEPATIC ENZYME INCREASED [None]
  - HEPATIC FAILURE [None]
  - INTERNATIONAL NORMALISED RATIO INCREASED [None]
  - INTESTINAL ISCHAEMIA [None]
  - LACTIC ACIDOSIS [None]
  - MUCOSAL EROSION [None]
  - MYOCARDITIS [None]
  - OCCULT BLOOD POSITIVE [None]
  - ORGAN FAILURE [None]
  - PERICARDIAL EFFUSION [None]
  - PLEURAL EFFUSION [None]
  - PNEUMONIA [None]
  - PYREXIA [None]
  - RENAL FAILURE [None]
  - RESPIRATORY FAILURE [None]
  - SINUS TACHYCARDIA [None]
  - STEVENS-JOHNSON SYNDROME [None]
  - SYSTEMIC CANDIDA [None]
  - TREMOR [None]
  - URINE OUTPUT DECREASED [None]
